FAERS Safety Report 24423737 (Version 2)
Quarter: 2024Q4

REPORT INFORMATION
  Report Type: Spontaneous
  Country: US (occurrence: US)
  Receive Date: 20241010
  Receipt Date: 20241122
  Transmission Date: 20250115
  Serious: No
  Sender: IOVANCE BIOTHERAPEUTICS MANUFACTURING LLC
  Company Number: US-IOVANCE BIOTHERAPEUTICS INC.-IOV2024000040

PATIENT

DRUGS (2)
  1. PROLEUKIN [Suspect]
     Active Substance: ALDESLEUKIN
     Indication: Product used for unknown indication
     Dosage: UNK
     Route: 065
     Dates: start: 20240905
  2. LIFILEUCEL [Suspect]
     Active Substance: LIFILEUCEL
     Indication: Metastatic malignant melanoma
     Dosage: UNK
     Route: 065
     Dates: start: 20240905

REACTIONS (3)
  - Vomiting [Not Recovered/Not Resolved]
  - Fatigue [Not Recovered/Not Resolved]
  - Nausea [Not Recovered/Not Resolved]

NARRATIVE: CASE EVENT DATE: 20240101
